FAERS Safety Report 5606974-5 (Version None)
Quarter: 2008Q1

REPORT INFORMATION
  Report Type: 
  Country: None (occurrence: None)
  Receive Date: 20080129
  Receipt Date: 20080121
  Transmission Date: 20080703
  Serious: Yes (Hospitalization)
  Sender: FDA-Public Use
  Company Number: US-ABBOTT-08P-163-0434303-00

PATIENT
  Sex: Male
  Weight: 58.112 kg

DRUGS (3)
  1. HUMIRA [Suspect]
     Indication: CROHN'S DISEASE
     Route: 058
     Dates: start: 20071221
  2. HUMIRA [Suspect]
     Route: 058
     Dates: start: 20080118
  3. PIOGLITAZONE [Concomitant]
     Indication: DIABETES MELLITUS

REACTIONS (5)
  - BLOOD GLUCOSE INCREASED [None]
  - FALL [None]
  - HEAD INJURY [None]
  - MASS [None]
  - RASH MACULAR [None]
